FAERS Safety Report 20356507 (Version 1)
Quarter: 2022Q1

REPORT INFORMATION
  Report Type: Spontaneous
  Country: US (occurrence: None)
  Receive Date: 20220119
  Receipt Date: 20220119
  Transmission Date: 20220423
  Serious: Yes (Other)
  Sender: FDA-Public Use
  Company Number: None

PATIENT
  Age: 82 Year
  Weight: 78.75 kg

DRUGS (21)
  1. TEMOZOLOMIDE [Suspect]
     Active Substance: TEMOZOLOMIDE
     Indication: Malignant melanoma
     Dosage: OTHER FREQUENCY : DAILY FOR 5 DAYS;?
     Route: 048
     Dates: start: 20211026
  2. PREDNISONE [Concomitant]
     Active Substance: PREDNISONE
  3. PROTONIX [Concomitant]
     Active Substance: PANTOPRAZOLE SODIUM
  4. ASPIRIN [Concomitant]
     Active Substance: ASPIRIN
  5. CLONIDINE [Concomitant]
     Active Substance: CLONIDINE
  6. ATORVASTATIN [Concomitant]
     Active Substance: ATORVASTATIN
  7. HYDRALAZINE [Concomitant]
     Active Substance: HYDRALAZINE HYDROCHLORIDE
  8. DOXAZOSIN [Concomitant]
     Active Substance: DOXAZOSIN MESYLATE
  9. OMEGA-3 ACIDS [Concomitant]
     Active Substance: OMEGA-3 FATTY ACIDS
  10. CALTRATE [Concomitant]
     Active Substance: CALCIUM CARBONATE
  11. SPIRONOLACTONE [Concomitant]
     Active Substance: SPIRONOLACTONE
  12. COREG [Concomitant]
     Active Substance: CARVEDILOL
  13. DICYCLOMINE [Concomitant]
     Active Substance: DICYCLOMINE HYDROCHLORIDE
  14. LEVOTHYROXINE [Concomitant]
     Active Substance: LEVOTHYROXINE
  15. ENALAPRIL [Concomitant]
     Active Substance: ENALAPRIL
  16. NORVASC [Concomitant]
     Active Substance: AMLODIPINE BESYLATE
  17. PHENOBARBITAL [Concomitant]
     Active Substance: PHENOBARBITAL
  18. ALLOPURINOL [Concomitant]
     Active Substance: ALLOPURINOL
  19. ARICEPT [Concomitant]
     Active Substance: DONEPEZIL HYDROCHLORIDE
  20. MONTELUKAST [Concomitant]
     Active Substance: MONTELUKAST SODIUM
  21. PLAVIX [Concomitant]
     Active Substance: CLOPIDOGREL BISULFATE

REACTIONS (1)
  - Decreased appetite [None]

NARRATIVE: CASE EVENT DATE: 20220119
